FAERS Safety Report 21563916 (Version 2)
Quarter: 2022Q4

REPORT INFORMATION
  Report Type: Spontaneous
  Country: US (occurrence: US)
  Receive Date: 20221108
  Receipt Date: 20221110
  Transmission Date: 20230113
  Serious: No
  Sender: FDA-Public Use
  Company Number: US-002147023-NVSC2022US250818

PATIENT
  Sex: Male

DRUGS (1)
  1. MEKINIST [Suspect]
     Active Substance: TRAMETINIB DIMETHYL SULFOXIDE
     Indication: Nervous system neoplasm benign
     Dosage: 2 MG, QD
     Route: 048
     Dates: start: 20220513

REACTIONS (4)
  - Visual impairment [Unknown]
  - Alopecia [Unknown]
  - Myopia [Unknown]
  - Product use in unapproved indication [Unknown]
